FAERS Safety Report 8157075-6 (Version None)
Quarter: 2012Q1

REPORT INFORMATION
  Report Type: 
  Country: None (occurrence: None)
  Receive Date: 20120222
  Receipt Date: 20120220
  Transmission Date: 20120608
  Serious: Yes (Other)
  Sender: FDA-Public Use
  Company Number: FR-EISAI INC-E2020-10365-SPO-FR

PATIENT
  Sex: Male

DRUGS (2)
  1. MEMANTINE HYDROCHLORIDE [Suspect]
     Dosage: UNKNOWN
     Route: 048
     Dates: start: 20100901, end: 20111229
  2. ARICEPT [Suspect]
     Dosage: UNKNOWN
     Route: 048
     Dates: start: 20090401, end: 20120101

REACTIONS (1)
  - LIPASE INCREASED [None]
